FAERS Safety Report 9425587 (Version 2)
Quarter: 2013Q3

REPORT INFORMATION
  Report Type: Report from Study
  Country: US (occurrence: US)
  Receive Date: 20130729
  Receipt Date: 20130828
  Transmission Date: 20140515
  Serious: Yes (Other)
  Sender: FDA-Public Use
  Company Number: US-MYLANLABS-2013S1016281

PATIENT
  Age: 22 Year
  Sex: Male

DRUGS (1)
  1. AMNESTEEM CAPSULES [Suspect]
     Indication: ACNE CYSTIC
     Dates: start: 20130604, end: 20130609

REACTIONS (2)
  - Suicidal ideation [Recovered/Resolved]
  - Depression [Recovered/Resolved]
